FAERS Safety Report 8374966-1 (Version None)
Quarter: 2012Q2

REPORT INFORMATION
  Report Type: 
  Country: None (occurrence: None)
  Receive Date: 20120521
  Receipt Date: 20120514
  Transmission Date: 20120825
  Serious: Yes (Other)
  Sender: FDA-Public Use
  Company Number: CA-ROCHE-1069914

PATIENT
  Sex: Female
  Weight: 99.88 kg

DRUGS (7)
  1. TRAZODONE [Concomitant]
  2. WARFARIN SODIUM [Concomitant]
  3. XELODA [Suspect]
     Indication: NEOPLASM MALIGNANT
     Route: 048
     Dates: start: 20111222, end: 20111231
  4. HYDROCHLOROTHIAZIDE [Concomitant]
  5. SYNTHROID [Concomitant]
  6. AVAPRO [Concomitant]
  7. VENLAFAXINE [Concomitant]

REACTIONS (4)
  - PARAESTHESIA [None]
  - NERVE INJURY [None]
  - HYPOAESTHESIA [None]
  - PAIN IN EXTREMITY [None]
